FAERS Safety Report 7739804-6 (Version None)
Quarter: 2011Q3

REPORT INFORMATION
  Report Type: 
  Country: None (occurrence: None)
  Receive Date: 20110906
  Receipt Date: 20110818
  Transmission Date: 20111222
  Serious: Yes (Other)
  Sender: FDA-Public Use
  Company Number: US-SEPTODONT-201100146

PATIENT
  Age: 38 Year
  Sex: Female
  Weight: 66 kg

DRUGS (2)
  1. LIGNOSPAN STANDARD [Suspect]
     Indication: LOCAL ANAESTHESIA
     Dosage: 3/4 CARTRIDGE DENTAL
     Route: 004
     Dates: start: 20110817, end: 20110817
  2. TOPICAL ANAESTHETIC [Concomitant]

REACTIONS (7)
  - ABDOMINAL PAIN UPPER [None]
  - PALPITATIONS [None]
  - COLD SWEAT [None]
  - DIARRHOEA [None]
  - BLOOD PRESSURE DIASTOLIC INCREASED [None]
  - HYPERHIDROSIS [None]
  - DYSARTHRIA [None]
